FAERS Safety Report 9438441 (Version 1)
Quarter: 2013Q3

REPORT INFORMATION
  Report Type: Spontaneous
  Country: US (occurrence: US)
  Receive Date: 20130802
  Receipt Date: 20130802
  Transmission Date: 20140515
  Serious: No
  Sender: FDA-Public Use
  Company Number: US-BRISTOL-MYERS SQUIBB COMPANY-17285040

PATIENT
  Sex: Female

DRUGS (6)
  1. COUMADIN [Suspect]
     Indication: CEREBROVASCULAR ACCIDENT PROPHYLAXIS
     Dosage: SWITCHED 1.5 TABS/DAY AT NIGHT
     Route: 048
     Dates: start: 20130102
  2. LOVENOX [Concomitant]
     Indication: THROMBOSIS
  3. SYMBICORT [Concomitant]
  4. PROVENTIL [Concomitant]
  5. SINGULAIR [Concomitant]
  6. NEXIUM [Concomitant]

REACTIONS (1)
  - Headache [Not Recovered/Not Resolved]
